FAERS Safety Report 21630733 (Version 8)
Quarter: 2023Q1

REPORT INFORMATION
  Report Type: Spontaneous
  Country: US (occurrence: US)
  Receive Date: 20221123
  Receipt Date: 20230330
  Transmission Date: 20230418
  Serious: No
  Sender: FDA-Public Use
  Company Number: US-GLAXOSMITHKLINE-US2022AMR170059

PATIENT
  Sex: Female

DRUGS (1)
  1. ZEJULA [Suspect]
     Active Substance: NIRAPARIB
     Indication: Ovarian cancer
     Dosage: 200 MG, QD
     Dates: end: 202302

REACTIONS (7)
  - Fatigue [Recovering/Resolving]
  - Initial insomnia [Recovering/Resolving]
  - Constipation [Recovered/Resolved]
  - Blood glucose abnormal [Unknown]
  - Red blood cell count abnormal [Recovering/Resolving]
  - Haemoglobin abnormal [Recovering/Resolving]
  - Haematocrit abnormal [Recovering/Resolving]
